FAERS Safety Report 4835436-8 (Version None)
Quarter: 2005Q4

REPORT INFORMATION
  Report Type: 
  Country: None (occurrence: None)
  Receive Date: 20051122
  Receipt Date: 20051122
  Transmission Date: 20060501
  Serious: No
  Sender: FDA-Public Use
  Company Number: None

PATIENT
  Age: 33 Year
  Sex: Female
  Weight: 58.9676 kg

DRUGS (1)
  1. RETIN-A [Suspect]
     Dosage: 1 USE ONCE
     Dates: start: 20050924

REACTIONS (1)
  - SKIN DISCOLOURATION [None]
